FAERS Safety Report 9648608 (Version 1)
Quarter: 2013Q4

REPORT INFORMATION
  Report Type: Spontaneous
  Country: US (occurrence: US)
  Receive Date: 20131028
  Receipt Date: 20131028
  Transmission Date: 20140711
  Serious: Yes (Other)
  Sender: FDA-Public Use
  Company Number: US-TEVA-440032USA

PATIENT
  Sex: Female

DRUGS (1)
  1. LAMOTRIGINE [Suspect]

REACTIONS (1)
  - Coeliac disease [Unknown]
